FAERS Safety Report 17877463 (Version 5)
Quarter: 2020Q4

REPORT INFORMATION
  Report Type: Report from Study
  Country: CA (occurrence: CA)
  Receive Date: 20200609
  Receipt Date: 20201203
  Transmission Date: 20210113
  Serious: Yes (Death, Hospitalization, Other)
  Sender: FDA-Public Use
  Company Number: CA-HLS-202000059

PATIENT
  Age: 71 Year
  Sex: Male
  Weight: 47 kg

DRUGS (13)
  1. SYMBICORT [Concomitant]
     Active Substance: BUDESONIDE\FORMOTEROL FUMARATE DIHYDRATE
     Dosage: UNKNOWN
     Route: 065
  2. CLOZARIL [Suspect]
     Active Substance: CLOZAPINE
     Dosage: 25MG AND GRADUALLY INCREASED
     Route: 048
     Dates: end: 20200508
  3. AZITHROMYCIN ANHYDROUS. [Concomitant]
     Active Substance: AZITHROMYCIN ANHYDROUS
     Dosage: UNKNOWN
     Route: 065
  4. ALLOPURINOL. [Concomitant]
     Active Substance: ALLOPURINOL
     Dosage: UNKNOWN
     Route: 065
  5. CHLORPROMAZINE. [Concomitant]
     Active Substance: CHLORPROMAZINE
     Dosage: UNKNOWN
     Route: 065
  6. IRON [Concomitant]
     Active Substance: IRON
     Dosage: UNKNOWN
     Route: 065
  7. K-DUR [Concomitant]
     Active Substance: POTASSIUM CHLORIDE
     Dosage: UNKNOWN
     Route: 065
  8. LAX-A-DAY [Concomitant]
     Active Substance: POLYETHYLENE GLYCOL 3350
     Dosage: UNKNOWN
     Route: 065
  9. MOTILLUM [Concomitant]
     Dosage: UNKNOWN
     Route: 065
  10. HALOPERIDOL. [Concomitant]
     Active Substance: HALOPERIDOL
     Dosage: UNKNOWN
     Route: 065
  11. SPIRIVA [Concomitant]
     Active Substance: TIOTROPIUM BROMIDE MONOHYDRATE
     Dosage: UNKNOWN
     Route: 065
  12. PANTOLOC [Concomitant]
     Active Substance: PANTOPRAZOLE SODIUM
     Dosage: UNKNOWN
     Route: 065
  13. CLOZARIL [Suspect]
     Active Substance: CLOZAPINE
     Dosage: 150MG AT BEDTIME
     Route: 048
     Dates: start: 19950517, end: 20190219

REACTIONS (33)
  - Pneumonia aspiration [Unknown]
  - Somnolence [Recovered/Resolved]
  - Dry mouth [Unknown]
  - Asthenia [Recovered/Resolved]
  - Confusional state [Recovered/Resolved]
  - Diarrhoea [Recovered/Resolved]
  - Dry mouth [Recovered/Resolved]
  - Enuresis [Recovered/Resolved]
  - Hypotension [Recovered/Resolved]
  - Pneumonia [Recovered/Resolved]
  - Salivary hypersecretion [Unknown]
  - Tachycardia [Recovered/Resolved]
  - Confusional state [Recovered/Resolved]
  - Cough [Unknown]
  - Weight decreased [Unknown]
  - Abdominal infection [Unknown]
  - Enuresis [Recovered/Resolved]
  - Gastrointestinal obstruction [Unknown]
  - Headache [Recovered/Resolved]
  - Salivary hypersecretion [Unknown]
  - Hyperhidrosis [Recovered/Resolved]
  - Vision blurred [Recovered/Resolved]
  - Pulmonary sepsis [Fatal]
  - Salivary hypersecretion [Recovered/Resolved]
  - Constipation [Unknown]
  - Hypotension [Recovered/Resolved]
  - Pneumonia [Recovered/Resolved]
  - Hypertonia [Recovered/Resolved]
  - Hypertonia [Recovered/Resolved]
  - Hypertonia [Recovered/Resolved]
  - Lethargy [Unknown]
  - Subileus [Unknown]
  - Asthenia [Unknown]

NARRATIVE: CASE EVENT DATE: 20180709
